FAERS Safety Report 7909979-4 (Version None)
Quarter: 2011Q4

REPORT INFORMATION
  Report Type: 
  Country: None (occurrence: None)
  Receive Date: 20111111
  Receipt Date: 20111102
  Transmission Date: 20120403
  Serious: Yes (Death, Life-Threatening)
  Sender: FDA-Public Use
  Company Number: JP-JNJFOC-20111103551

PATIENT
  Sex: Male

DRUGS (7)
  1. ASPIRIN [Concomitant]
     Indication: PRODUCT USED FOR UNKNOWN INDICATION
     Route: 048
     Dates: end: 20111027
  2. MAGMITT [Concomitant]
     Indication: RENAL FAILURE
     Route: 048
  3. RISUMIC [Concomitant]
     Indication: RENAL FAILURE
     Route: 048
  4. FAMOTIDINE [Concomitant]
     Indication: PRODUCT USED FOR UNKNOWN INDICATION
     Route: 048
  5. ZOSYN [Suspect]
     Indication: PNEUMONIA
     Route: 042
     Dates: start: 20111007, end: 20111017
  6. MUCOSIL-10 [Concomitant]
     Indication: LUNG NEOPLASM MALIGNANT
     Route: 048
  7. LEVOFLOXACIN [Suspect]
     Indication: PNEUMONIA
     Route: 048
     Dates: start: 20111018, end: 20111026

REACTIONS (4)
  - SEPSIS [None]
  - AGRANULOCYTOSIS [None]
  - OROPHARYNGEAL PAIN [None]
  - PYREXIA [None]
